FAERS Safety Report 4418629-3 (Version None)
Quarter: 2004Q3

REPORT INFORMATION
  Report Type: 
  Country: None (occurrence: None)
  Receive Date: 20040809
  Receipt Date: 20031212
  Transmission Date: 20050211
  Serious: No
  Sender: FDA-Public Use
  Company Number: US-GLAXOSMITHKLINE-A0443525A

PATIENT
  Age: 48 Year
  Sex: Female

DRUGS (4)
  1. PAXIL [Suspect]
     Indication: ILL-DEFINED DISORDER
  2. EFFEXOR [Concomitant]
     Indication: ILL-DEFINED DISORDER
  3. INDERAL [Concomitant]
     Indication: ILL-DEFINED DISORDER
  4. NORVASC [Concomitant]
     Indication: ILL-DEFINED DISORDER

REACTIONS (1)
  - ABNORMAL DREAMS [None]
